FAERS Safety Report 23232400 (Version 1)
Quarter: 2023Q4

REPORT INFORMATION
  Report Type: Report from Study
  Country: IL (occurrence: IL)
  Receive Date: 20231128
  Receipt Date: 20231128
  Transmission Date: 20240110
  Serious: Yes (Hospitalization)
  Sender: FDA-Public Use
  Company Number: IL-ABBVIE-5342572

PATIENT
  Age: 72 Year
  Sex: Male

DRUGS (3)
  1. CARBIDOPA\LEVODOPA [Suspect]
     Active Substance: CARBIDOPA\LEVODOPA
     Indication: Parkinson^s disease
     Dosage: MORNING DOSE 13.0ML, CONTINUOUS DOSE 5.5ML/HOUR, EXTRA DOSE 3ML
     Route: 050
  2. CARBIDOPA\LEVODOPA [Suspect]
     Active Substance: CARBIDOPA\LEVODOPA
     Route: 050
     Dates: start: 20220109
  3. CARBIDOPA\LEVODOPA [Suspect]
     Active Substance: CARBIDOPA\LEVODOPA
     Dosage: MORNING DOSAGE(ML)  13.0, CONTINUOUS DOSAGE (ML/H)  4.3, EXTRA DOSAGE (ML)  2.5
     Route: 050

REACTIONS (8)
  - Dyspnoea [Recovering/Resolving]
  - Nocturia [Recovering/Resolving]
  - On and off phenomenon [Recovering/Resolving]
  - Dyskinesia [Recovering/Resolving]
  - Muscle rigidity [Recovering/Resolving]
  - Musculoskeletal stiffness [Recovering/Resolving]
  - Tremor [Recovering/Resolving]
  - On and off phenomenon [Recovering/Resolving]

NARRATIVE: CASE EVENT DATE: 20231101
